FAERS Safety Report 6823346-6 (Version None)
Quarter: 2010Q3

REPORT INFORMATION
  Report Type: 
  Country: None (occurrence: None)
  Receive Date: 20100708
  Receipt Date: 20100629
  Transmission Date: 20110219
  Serious: Yes (Hospitalization)
  Sender: FDA-Public Use
  Company Number: US-B.I. PHARMACEUTICALS,INC./RIDGEFIELD-2010-BP-07410BP

PATIENT
  Sex: Male

DRUGS (1)
  1. FLOMAX [Suspect]

REACTIONS (2)
  - DYSPHAGIA [None]
  - GASTROINTESTINAL HAEMORRHAGE [None]
